FAERS Safety Report 11748451 (Version 2)
Quarter: 2015Q4

REPORT INFORMATION
  Report Type: Spontaneous
  Country: FR (occurrence: FR)
  Receive Date: 20151117
  Receipt Date: 20151130
  Transmission Date: 20160304
  Serious: Yes (Other)
  Sender: FDA-Public Use
  Company Number: ALCN2011FR004791

PATIENT
  Age: 68 Year
  Sex: Male
  Weight: 64 kg

DRUGS (1)
  1. AZOPT [Suspect]
     Active Substance: BRINZOLAMIDE
     Indication: OCULAR HYPERTENSION
     Dosage: 1 GTT, BID
     Route: 047
     Dates: start: 201001, end: 20110814

REACTIONS (9)
  - Dyspnoea [Recovered/Resolved]
  - Pneumonia [Recovered/Resolved]
  - Asthenia [Recovered/Resolved]
  - Cough [Not Recovered/Not Resolved]
  - Bronchial hyperreactivity [Recovered/Resolved]
  - Lung disorder [Recovered/Resolved]
  - Lung infection [Recovered/Resolved]
  - Muscle spasms [Recovered/Resolved]
  - Bronchitis chronic [Recovered/Resolved]

NARRATIVE: CASE EVENT DATE: 201006
